FAERS Safety Report 5326519-7 (Version None)
Quarter: 2007Q2

REPORT INFORMATION
  Report Type: 
  Country: None (occurrence: None)
  Receive Date: 20070516
  Receipt Date: 20070510
  Transmission Date: 20071010
  Serious: Yes (Death)
  Sender: FDA-Public Use
  Company Number: US-PURDUE-USA_2007_0027307

PATIENT
  Age: 8 Year
  Sex: Female

DRUGS (1)
  1. OXYCONTIN [Suspect]
     Indication: VICTIM OF HOMICIDE
     Dates: start: 20070401

REACTIONS (1)
  - VICTIM OF HOMICIDE [None]
